FAERS Safety Report 13694021 (Version 1)
Quarter: 2017Q2

REPORT INFORMATION
  Report Type: Spontaneous
  Country: US (occurrence: US)
  Receive Date: 20170626
  Receipt Date: 20170626
  Transmission Date: 20170830
  Serious: Yes (Disabling)
  Sender: FDA-Public Use
  Company Number: None

PATIENT
  Age: 30 Year
  Sex: Male
  Weight: 87.75 kg

DRUGS (1)
  1. VALIUM [Suspect]
     Active Substance: DIAZEPAM
     Indication: ANXIETY
     Dosage: ?          QUANTITY:1 TABLET(S);?
     Route: 048
     Dates: start: 20150804, end: 20151104

REACTIONS (7)
  - Insomnia [None]
  - Akathisia [None]
  - Anxiety [None]
  - Agoraphobia [None]
  - Vertigo [None]
  - Gastric disorder [None]
  - Migraine [None]

NARRATIVE: CASE EVENT DATE: 20151001
